FAERS Safety Report 4314464-5 (Version None)
Quarter: 2004Q1

REPORT INFORMATION
  Report Type: 
  Country: None (occurrence: None)
  Receive Date: 20040308
  Receipt Date: 20040226
  Transmission Date: 20041129
  Serious: Yes (Hospitalization)
  Sender: FDA-Public Use
  Company Number: 04P-062-0251833-00

PATIENT
  Age: 27 Year
  Sex: Female
  Weight: 55 kg

DRUGS (5)
  1. BIAXIN [Suspect]
     Dosage: 250 MG, 10 IN 1 D, PER ORAL
     Route: 048
     Dates: start: 20040226, end: 20040226
  2. TRIFENE [Suspect]
     Dosage: 200 MG, 18 IN 1 D, PER ORAL
     Route: 048
     Dates: start: 20040226, end: 20040226
  3. SINUPRET [Suspect]
     Dosage: 20 TABLET, 20 IN 1 D, PER ORAL
     Route: 048
     Dates: start: 20040226, end: 20040226
  4. ROBAXISAL WITH CODEINE [Suspect]
     Dosage: 10 TABLET, 10 IN 1 D, PER ORAL
     Route: 048
     Dates: start: 20040226, end: 20040226
  5. AMBROXOL [Suspect]
     Dosage: 30 MG, 20 IN 1 D, PER ORAL
     Route: 048
     Dates: start: 20040226, end: 20040226

REACTIONS (1)
  - SUICIDE ATTEMPT [None]
